FAERS Safety Report 10680149 (Version 5)
Quarter: 2015Q1

REPORT INFORMATION
  Report Type: Spontaneous
  Country: US (occurrence: US)
  Receive Date: 20141229
  Receipt Date: 20150121
  Transmission Date: 20150720
  Serious: Yes (Death, Hospitalization)
  Sender: FDA-Public Use
  Company Number: US-UNITED THERAPEUTICS-UNT-2014-012708

PATIENT
  Age: 59 Year
  Sex: Female
  Weight: 115.19 kg

DRUGS (4)
  1. REMODULIN [Suspect]
     Active Substance: TREPROSTINIL
     Indication: PULMONARY ARTERIAL HYPERTENSION
     Dosage: 0.010 ?G/KG, CONTINUING
     Route: 041
     Dates: start: 20141216
  2. REMODULIN [Suspect]
     Active Substance: TREPROSTINIL
     Dosage: 0.010 ?G/KG, CONTINUING
     Route: 041
     Dates: start: 20141216
  3. LETAIRIS [Concomitant]
     Active Substance: AMBRISENTAN
     Indication: PRODUCT USED FOR UNKNOWN INDICATION
  4. ASPIRIN                            /00002701/ [Concomitant]
     Active Substance: ASPIRIN
     Indication: PRODUCT USED FOR UNKNOWN INDICATION

REACTIONS (10)
  - Sepsis [Unknown]
  - Death [Fatal]
  - Arthralgia [Unknown]
  - Pyrexia [Unknown]
  - Pleural effusion [Unknown]
  - Unresponsive to stimuli [Unknown]
  - Abdominal pain [Unknown]
  - Pulmonary arterial hypertension [Unknown]
  - Headache [Unknown]
  - Chills [Unknown]

NARRATIVE: CASE EVENT DATE: 201412
